FAERS Safety Report 5507065-4 (Version None)
Quarter: 2007Q4

REPORT INFORMATION
  Report Type: 
  Country: None (occurrence: None)
  Receive Date: 20071105
  Receipt Date: 20071031
  Transmission Date: 20080405
  Serious: Yes (Hospitalization)
  Sender: FDA-Public Use
  Company Number: US-GENENTECH-250628

PATIENT
  Sex: Male
  Weight: 58.957 kg

DRUGS (3)
  1. BEVACIZUMAB [Suspect]
     Indication: NEOPLASM MALIGNANT
     Dosage: 15 MG/KG, WKS 1 + 4
     Dates: start: 20070802
  2. ERLOTINIB [Suspect]
     Indication: NEOPLASM MALIGNANT
     Dosage: 150 MG, QD
     Dates: start: 20070802
  3. PACLITAXEL [Suspect]
     Indication: NEOPLASM MALIGNANT
     Dosage: 50 MG/M2, WK 1-6
     Dates: start: 20070802

REACTIONS (1)
  - PYREXIA [None]
